FAERS Safety Report 9729211 (Version 2)
Quarter: 2013Q4

REPORT INFORMATION
  Report Type: Spontaneous
  Country: US (occurrence: US)
  Receive Date: 20131204
  Receipt Date: 20131204
  Transmission Date: 20140711
  Serious: No
  Sender: FDA-Public Use
  Company Number: US-GILEAD-2013-0085044

PATIENT
  Sex: Female

DRUGS (2)
  1. LETAIRIS [Suspect]
     Indication: PRODUCT USED FOR UNKNOWN INDICATION
     Dosage: 5 MG, QD
     Dates: start: 20070820
  2. REVATIO [Concomitant]

REACTIONS (3)
  - Bronchitis [Recovering/Resolving]
  - Candida infection [Recovering/Resolving]
  - Viral upper respiratory tract infection [Recovering/Resolving]
